FAERS Safety Report 21710810 (Version 1)
Quarter: 2022Q4

REPORT INFORMATION
  Report Type: Spontaneous
  Country: CN (occurrence: None)
  Receive Date: 20221212
  Receipt Date: 20221212
  Transmission Date: 20230113
  Serious: Yes (Hospitalization)
  Sender: FDA-Public Use
  Company Number: CN-Merck Healthcare KGaA-9370731

PATIENT
  Age: 68 Year
  Sex: Male
  Weight: 60 kg

DRUGS (3)
  1. GLUCOPHAGE [Suspect]
     Active Substance: METFORMIN HYDROCHLORIDE
     Indication: Diabetes mellitus
     Route: 048
     Dates: start: 20221115, end: 20221120
  2. METHYLCOBALAMIN [Suspect]
     Active Substance: METHYLCOBALAMIN
     Indication: Supplementation therapy
     Route: 048
     Dates: start: 20221115, end: 20221120
  3. KALLIDINOGENASE [Suspect]
     Active Substance: KALLIDINOGENASE
     Indication: Cardiovascular disorder
     Dosage: ENTERIC-COATED TABLETS
     Route: 048
     Dates: start: 20221115, end: 20221120

REACTIONS (1)
  - Decreased appetite [Recovering/Resolving]

NARRATIVE: CASE EVENT DATE: 20221120
